FAERS Safety Report 6588913-6 (Version None)
Quarter: 2010Q1

REPORT INFORMATION
  Report Type: 
  Country: None (occurrence: None)
  Receive Date: 20100212
  Receipt Date: 20100126
  Transmission Date: 20100710
  Serious: Yes (Hospitalization)
  Sender: FDA-Public Use
  Company Number: 8051080

PATIENT
  Sex: Female
  Weight: 88 kg

DRUGS (5)
  1. CERTOLIZUMAB PEGOL (CERTOLIZUMAB PEGOL) [Suspect]
     Indication: RHEUMATOID ARTHRITIS
     Dosage: SEE IMAGE
     Route: 058
     Dates: start: 20050829, end: 20060731
  2. CERTOLIZUMAB PEGOL (CERTOLIZUMAB PEGOL) [Suspect]
     Indication: RHEUMATOID ARTHRITIS
     Dosage: SEE IMAGE
     Route: 058
     Dates: start: 20060915, end: 20080211
  3. CERTOLIZUMAB PEGOL (CERTOLIZUMAB PEGOL) [Suspect]
     Indication: RHEUMATOID ARTHRITIS
     Dosage: SEE IMAGE
     Route: 058
     Dates: start: 20080227, end: 20090824
  4. METHOTREXATE [Concomitant]
  5. DICLOFENAC [Concomitant]

REACTIONS (24)
  - AORTIC VALVE INCOMPETENCE [None]
  - AORTIC WALL HYPERTROPHY [None]
  - ARTHRALGIA [None]
  - ARTHRITIS [None]
  - BACTERIAL TEST POSITIVE [None]
  - BLOOD URINE PRESENT [None]
  - CERVICAL CYST [None]
  - CHEST PAIN [None]
  - CONDITION AGGRAVATED [None]
  - DIASTOLIC DYSFUNCTION [None]
  - EMPYEMA [None]
  - FATIGUE [None]
  - GASTRODUODENITIS [None]
  - GOITRE [None]
  - HAEMATURIA [None]
  - HYDROTHORAX [None]
  - HYPERTENSION [None]
  - LEUKOCYTURIA [None]
  - PLEURAL EFFUSION [None]
  - PLEURISY [None]
  - PROTEIN URINE PRESENT [None]
  - PYREXIA [None]
  - RENAL CYST [None]
  - RHEUMATOID ARTHRITIS [None]
